FAERS Safety Report 17999609 (Version 1)
Quarter: 2020Q3

REPORT INFORMATION
  Report Type: Spontaneous
  Country: MY (occurrence: MY)
  Receive Date: 20200709
  Receipt Date: 20200709
  Transmission Date: 20201103
  Serious: Yes (Death, Other)
  Sender: FDA-Public Use
  Company Number: MY-ROCHE-2637939

PATIENT
  Sex: Male

DRUGS (1)
  1. ACTILYSE [Suspect]
     Active Substance: ALTEPLASE
     Indication: NERVOUS SYSTEM DISORDER
     Route: 065

REACTIONS (4)
  - Basal ganglia haemorrhage [Unknown]
  - Hydrocephalus [Unknown]
  - Death [Fatal]
  - Coma scale abnormal [Unknown]

NARRATIVE: CASE EVENT DATE: 201902
